FAERS Safety Report 9969960 (Version 1)
Quarter: 2014Q1

REPORT INFORMATION
  Report Type: Spontaneous
  Country: FI (occurrence: FI)
  Receive Date: 20140306
  Receipt Date: 20140306
  Transmission Date: 20141002
  Serious: Yes (Death, Other)
  Sender: FDA-Public Use
  Company Number: FI-TEVA-466243ISR

PATIENT
  Age: 85 Year
  Sex: Female

DRUGS (4)
  1. CITALOPRAM [Suspect]
     Route: 065
  2. OXAZEPAM [Suspect]
     Route: 065
  3. VENLAFAXINE [Suspect]
     Route: 065
  4. TEMAZEPAM [Suspect]
     Route: 065

REACTIONS (5)
  - Poisoning deliberate [Fatal]
  - Cerebrovascular accident [Fatal]
  - Loss of consciousness [Not Recovered/Not Resolved]
  - Vomiting [Unknown]
  - Pain [Unknown]
